FAERS Safety Report 10413864 (Version 1)
Quarter: 2014Q3

REPORT INFORMATION
  Report Type: Spontaneous
  Country: ES (occurrence: None)
  Receive Date: 20140825
  Receipt Date: 20140825
  Transmission Date: 20150326
  Serious: Yes (Other)
  Sender: FDA-Public Use
  Company Number: VAL_03335_2014

PATIENT
  Age: 48 Year
  Sex: Male

DRUGS (1)
  1. METHERGINE [Suspect]
     Active Substance: METHYLERGONOVINE MALEATE
     Indication: CARDIAC FUNCTION TEST
     Dosage: DF
     Dates: start: 20140723, end: 20140723

REACTIONS (1)
  - Dystonia [None]

NARRATIVE: CASE EVENT DATE: 20140723
